FAERS Safety Report 8859279 (Version 1)
Quarter: 2012Q4

REPORT INFORMATION
  Report Type: Spontaneous
  Country: ES (occurrence: None)
  Receive Date: 20121022
  Receipt Date: 20121022
  Transmission Date: 20130627
  Serious: Yes (Hospitalization)
  Sender: FDA-Public Use
  Company Number: 2012AP003399

PATIENT
  Age: 46 Year
  Sex: Female

DRUGS (5)
  1. LEVETIRACETAM [Suspect]
  2. VALPROIC ACID [Suspect]
  3. ASPIRIN (ACETYLSALICYLIC ACID) [Concomitant]
  4. ATORVASTATIN [Concomitant]
  5. TAMOXIFEN [Concomitant]

REACTIONS (2)
  - Psychomotor hyperactivity [None]
  - Porphyria acute [None]
